FAERS Safety Report 23666768 (Version 1)
Quarter: 2024Q1

REPORT INFORMATION
  Report Type: Spontaneous
  Country: US (occurrence: US)
  Receive Date: 20240325
  Receipt Date: 20240325
  Transmission Date: 20240409
  Serious: No
  Sender: FDA-Public Use
  Company Number: US-TEVA-VS-3170371

PATIENT
  Sex: Female

DRUGS (1)
  1. COPAXONE [Suspect]
     Active Substance: GLATIRAMER ACETATE
     Indication: Product used for unknown indication
     Dosage: DOSAGE: 20 MG/ML
     Route: 065

REACTIONS (4)
  - Injection site haemorrhage [Unknown]
  - Urticaria [Unknown]
  - Device leakage [Unknown]
  - Intentional dose omission [Unknown]
